FAERS Safety Report 11872723 (Version 1)
Quarter: 2015Q4

REPORT INFORMATION
  Report Type: Spontaneous
  Country: FR (occurrence: FR)
  Receive Date: 20151228
  Receipt Date: 20151228
  Transmission Date: 20160305
  Serious: Yes (Hospitalization, Other)
  Sender: FDA-Public Use
  Company Number: FR-BRISTOL-MYERS SQUIBB COMPANY-10646008

PATIENT
  Age: 0 Year
  Sex: Male
  Weight: 4.9 kg

DRUGS (3)
  1. VIDEX [Suspect]
     Active Substance: DIDANOSINE
     Indication: PRODUCT USED FOR UNKNOWN INDICATION
     Dosage: UNK
     Route: 064
  2. ZERIT [Suspect]
     Active Substance: STAVUDINE
     Indication: PRODUCT USED FOR UNKNOWN INDICATION
     Dosage: UNK
     Route: 064
  3. RETROVIR [Suspect]
     Active Substance: ZIDOVUDINE
     Indication: PRODUCT USED FOR UNKNOWN INDICATION
     Dosage: UNK
     Route: 064

REACTIONS (10)
  - Blood creatine phosphokinase increased [Recovered/Resolved]
  - Anaemia [Recovered/Resolved]
  - Vomiting [Recovered/Resolved]
  - Abdominal distension [Recovered/Resolved]
  - Foetal exposure during pregnancy [Unknown]
  - Acne [Recovered/Resolved]
  - Neutropenia [Recovered/Resolved]
  - Blood lactic acid increased [Recovered/Resolved]
  - Thrombocytopenia [Recovered/Resolved]
  - Macrocytosis [Recovered/Resolved]

NARRATIVE: CASE EVENT DATE: 2000
